FAERS Safety Report 18206363 (Version 1)
Quarter: 2020Q3

REPORT INFORMATION
  Report Type: Report from Study
  Country: None (occurrence: US)
  Receive Date: 20200827
  Receipt Date: 20200827
  Transmission Date: 20201103
  Serious: Yes (Other)
  Sender: FDA-Public Use
  Company Number: US-ABBVIE-20K-163-3536720-00

PATIENT
  Sex: Male

DRUGS (1)
  1. HUMIRA [Suspect]
     Active Substance: ADALIMUMAB
     Indication: PSORIATIC ARTHROPATHY
     Dosage: CITRATE FREE
     Route: 058

REACTIONS (9)
  - Intervertebral disc degeneration [Unknown]
  - Therapeutic response shortened [Unknown]
  - Arthralgia [Unknown]
  - Corneal disorder [Unknown]
  - Corneal abrasion [Unknown]
  - Product administration error [Unknown]
  - Product storage error [Unknown]
  - Intervertebral disc injury [Unknown]
  - Fall [Unknown]
